FAERS Safety Report 19599863 (Version 1)
Quarter: 2021Q3

REPORT INFORMATION
  Report Type: Report from Study
  Country: US (occurrence: US)
  Receive Date: 20210722
  Receipt Date: 20210722
  Transmission Date: 20211014
  Serious: Yes (Hospitalization, Other)
  Sender: FDA-Public Use
  Company Number: US-TAKEDA-US201723877

PATIENT
  Age: 58 Year
  Sex: Female
  Weight: 61 kg

DRUGS (32)
  1. TEDUGLUTIDE [Suspect]
     Active Substance: TEDUGLUTIDE
     Indication: SHORT-BOWEL SYNDROME
     Dosage: UNK
     Route: 065
  2. TEDUGLUTIDE [Suspect]
     Active Substance: TEDUGLUTIDE
     Indication: SHORT-BOWEL SYNDROME
     Dosage: UNK
     Route: 065
  3. TEDUGLUTIDE [Suspect]
     Active Substance: TEDUGLUTIDE
     Dosage: 2.490 MILLIGRAM (0.0500 MG/KG), QD
     Route: 065
     Dates: start: 20160927, end: 20160930
  4. TEDUGLUTIDE [Suspect]
     Active Substance: TEDUGLUTIDE
     Dosage: 2.490 MILLIGRAM (0.0500 MG/KG), QD
     Route: 065
     Dates: start: 20160927, end: 20160930
  5. TEDUGLUTIDE [Suspect]
     Active Substance: TEDUGLUTIDE
     Dosage: 5.000 MILLIGRAM (0.0900 MG/KG), QD
     Route: 065
     Dates: start: 20161116, end: 20161205
  6. TEDUGLUTIDE [Suspect]
     Active Substance: TEDUGLUTIDE
     Dosage: 2.490 MILLIGRAM (0.0500 MG/KG), QD
     Route: 065
     Dates: start: 20170310, end: 20170314
  7. TEDUGLUTIDE [Suspect]
     Active Substance: TEDUGLUTIDE
     Dosage: 2.500 MILLIGRAM (0.0500 MG/KG), QD
     Route: 065
     Dates: start: 20170315, end: 20170808
  8. TEDUGLUTIDE [Suspect]
     Active Substance: TEDUGLUTIDE
     Indication: SHORT-BOWEL SYNDROME
     Dosage: UNK
     Route: 065
  9. TEDUGLUTIDE [Suspect]
     Active Substance: TEDUGLUTIDE
     Dosage: 2.500 MILLIGRAM (0.0400 MG/KG), QD
     Route: 065
     Dates: start: 20161018, end: 20161031
  10. TEDUGLUTIDE [Suspect]
     Active Substance: TEDUGLUTIDE
     Dosage: 2.500 MILLIGRAM (0.0400 MG/KG), QD
     Route: 065
     Dates: start: 20161018, end: 20161031
  11. TEDUGLUTIDE [Suspect]
     Active Substance: TEDUGLUTIDE
     Dosage: 5.000 MILLIGRAM (0.0900 MG/KG), QD
     Route: 065
     Dates: start: 20161116, end: 20161205
  12. TEDUGLUTIDE [Suspect]
     Active Substance: TEDUGLUTIDE
     Dosage: 2.490 MILLIGRAM (0.0500 MG/KG), QD
     Route: 065
     Dates: start: 20170310, end: 20170314
  13. ALTEPLASE. [Concomitant]
     Active Substance: ALTEPLASE
     Indication: VASCULAR DEVICE OCCLUSION
     Dosage: 2 MG, AS REQ^D
     Dates: start: 20160105
  14. TEDUGLUTIDE [Suspect]
     Active Substance: TEDUGLUTIDE
     Dosage: 2.500 MILLIGRAM (0.0400 MG/KG), QD
     Route: 065
     Dates: start: 20161018, end: 20161031
  15. TEDUGLUTIDE [Suspect]
     Active Substance: TEDUGLUTIDE
     Dosage: 5.000 MILLIGRAM (0.0900 MG/KG), QD
     Route: 065
     Dates: start: 20161116, end: 20161205
  16. TEDUGLUTIDE [Suspect]
     Active Substance: TEDUGLUTIDE
     Dosage: 2.490 MILLIGRAM (0.0500 MG/KG), QD
     Route: 065
     Dates: start: 20170310, end: 20170314
  17. TEDUGLUTIDE [Suspect]
     Active Substance: TEDUGLUTIDE
     Dosage: 2.490 MILLIGRAM (0.0500 MG/KG), QD
     Route: 065
     Dates: start: 20170310, end: 20170314
  18. TEDUGLUTIDE [Suspect]
     Active Substance: TEDUGLUTIDE
     Dosage: 2.500 MILLIGRAM (0.0500 MG/KG), QD
     Route: 065
     Dates: start: 20170315, end: 20170808
  19. LOMOTIL                            /00384302/ [Concomitant]
     Active Substance: LOPERAMIDE HYDROCHLORIDE
     Dosage: 1 TAB, AS REQ^D
     Route: 048
     Dates: start: 20151120, end: 20160116
  20. OXYCODONE [Concomitant]
     Active Substance: OXYCODONE
     Indication: PAIN
     Dosage: 30 MG, AS REQ^D
     Route: 048
     Dates: start: 20151120
  21. MIDODRINE [Concomitant]
     Active Substance: MIDODRINE
     Indication: HYPOTENSION
     Dosage: 7.50 MILLIGRAM, TID
     Route: 048
     Dates: start: 20161023, end: 20161025
  22. TEDUGLUTIDE [Suspect]
     Active Substance: TEDUGLUTIDE
     Dosage: 2.490 MILLIGRAM (0.0500 MG/KG), QD
     Route: 065
     Dates: start: 20160927, end: 20160930
  23. TEDUGLUTIDE [Suspect]
     Active Substance: TEDUGLUTIDE
     Dosage: 2.500 MILLIGRAM (0.0500 MG/KG), QD
     Route: 065
     Dates: start: 20170315, end: 20170808
  24. LOPERAMIDE [Concomitant]
     Active Substance: LOPERAMIDE
     Indication: ENTEROCUTANEOUS FISTULA
     Dosage: 4 MILLIGRAM, QID
     Route: 048
     Dates: start: 20171113, end: 20171119
  25. DIPHENOXYLATE/ATROPINE [Concomitant]
     Active Substance: ATROPINE\DIPHENOXYLATE
     Indication: ENTEROCUTANEOUS FISTULA
     Dosage: 1 DOSAGE FORM, QID
     Route: 048
     Dates: start: 20171113, end: 20171119
  26. TEDUGLUTIDE [Suspect]
     Active Substance: TEDUGLUTIDE
     Dosage: 2.490 MILLIGRAM (0.0500 MG/KG), QD
     Route: 065
     Dates: start: 20160927, end: 20160930
  27. TEDUGLUTIDE [Suspect]
     Active Substance: TEDUGLUTIDE
     Dosage: 2.500 MILLIGRAM (0.0400 MG/KG), QD
     Route: 065
     Dates: start: 20161018, end: 20161031
  28. LOMOTIL                            /00384302/ [Concomitant]
     Active Substance: LOPERAMIDE HYDROCHLORIDE
     Indication: DIARRHOEA
     Dosage: 2 TABS, AS REQ^D
     Route: 048
     Dates: start: 20160114
  29. TEDUGLUTIDE [Suspect]
     Active Substance: TEDUGLUTIDE
     Indication: SHORT-BOWEL SYNDROME
     Dosage: UNK
     Route: 065
  30. TEDUGLUTIDE [Suspect]
     Active Substance: TEDUGLUTIDE
     Dosage: 5.000 MILLIGRAM (0.0900 MG/KG), QD
     Route: 065
     Dates: start: 20161116, end: 20161205
  31. TEDUGLUTIDE [Suspect]
     Active Substance: TEDUGLUTIDE
     Dosage: 2.500 MILLIGRAM (0.0500 MG/KG), QD
     Route: 065
     Dates: start: 20170315, end: 20170808
  32. CHOLESTYRAMINE. [Concomitant]
     Active Substance: CHOLESTYRAMINE
     Indication: ENTEROCUTANEOUS FISTULA
     Dosage: 4 GRAM, BID
     Route: 048
     Dates: start: 20171106, end: 20171119

REACTIONS (1)
  - Sepsis [Recovered/Resolved]

NARRATIVE: CASE EVENT DATE: 20160826
